FAERS Safety Report 18758563 (Version 1)
Quarter: 2021Q1

REPORT INFORMATION
  Report Type: Report from Study
  Country: CA (occurrence: CA)
  Receive Date: 20210119
  Receipt Date: 20210119
  Transmission Date: 20210419
  Serious: Yes (Other)
  Sender: FDA-Public Use
  Company Number: CA-NALPROPION PHARMACEUTICALS INC.-2021-012104

PATIENT

DRUGS (4)
  1. TELMISARTAN. [Concomitant]
     Active Substance: TELMISARTAN
     Indication: HYPERTENSION
     Dosage: 80/12.5MG DAILY
     Route: 048
  2. CONTRAVE [Suspect]
     Active Substance: BUPROPION HYDROCHLORIDE\NALTREXONE HYDROCHLORIDE
     Indication: WEIGHT CONTROL
     Dosage: 90MG/8MG, 1 TABLET IN THE MORNING
     Route: 048
     Dates: start: 20201213, end: 20201219
  3. CONTRAVE [Suspect]
     Active Substance: BUPROPION HYDROCHLORIDE\NALTREXONE HYDROCHLORIDE
     Dosage: 90MG/8MG, 1 TABLET IN THE MORNING, 1 TABELT IN THE EVENING
     Route: 048
     Dates: start: 20201220, end: 20201226
  4. AMLODIPINE [Concomitant]
     Active Substance: AMLODIPINE BESYLATE
     Indication: HYPERTENSION
     Dosage: 0.5 DOSAGE FORMS
     Route: 048
     Dates: start: 20201226, end: 20201231

REACTIONS (5)
  - Malaise [Unknown]
  - Blood pressure ambulatory decreased [Unknown]
  - Palpitations [Unknown]
  - Blood pressure ambulatory increased [Unknown]
  - Asthenia [Unknown]

NARRATIVE: CASE EVENT DATE: 20201226
